FAERS Safety Report 24229986 (Version 6)
Quarter: 2025Q4

REPORT INFORMATION
  Report Type: Report from Study
  Country: US (occurrence: US)
  Receive Date: 20240820
  Receipt Date: 20251229
  Transmission Date: 20260118
  Serious: Yes (Other)
  Sender: PFIZER
  Company Number: US-PFIZER INC-PV202400106812

PATIENT
  Age: 46 Year
  Sex: Male

DRUGS (3)
  1. CABERGOLINE [Suspect]
     Active Substance: CABERGOLINE
     Indication: Pituitary tumour benign
     Dosage: UNK
     Dates: start: 1990
  2. CABERGOLINE [Suspect]
     Active Substance: CABERGOLINE
     Dosage: TWICE A WEEK, SUNDAY AND WEDNESDAY
     Dates: start: 2002
  3. CABERGOLINE [Suspect]
     Active Substance: CABERGOLINE
     Dosage: 3 PILLS SUNDAY AND 3 PILLS WEDNESDAY

REACTIONS (3)
  - Dependence [Unknown]
  - Gambling disorder [Unknown]
  - Feeling of despair [Unknown]

NARRATIVE: CASE EVENT DATE: 19900101
